FAERS Safety Report 24860912 (Version 1)
Quarter: 2025Q1

REPORT INFORMATION
  Report Type: Report from Study
  Country: US (occurrence: US)
  Receive Date: 20250120
  Receipt Date: 20250120
  Transmission Date: 20250408
  Serious: Yes (Hospitalization)
  Sender: CSL BEHRING
  Company Number: US-BEH-2023163227

PATIENT
  Age: 55 Year
  Sex: Male
  Weight: 91.156 kg

DRUGS (1)
  1. ZEMAIRA [Suspect]
     Active Substance: .ALPHA.1-PROTEINASE INHIBITOR HUMAN
     Indication: Alpha-1 antitrypsin deficiency
     Dosage: UNK, QW(STRENGTH: 60)
     Route: 042

REACTIONS (7)
  - Blood potassium decreased [Unknown]
  - Blood magnesium decreased [Unknown]
  - Bronchitis [Unknown]
  - Respiratory tract congestion [Unknown]
  - Cough [Unknown]
  - Pyrexia [Unknown]
  - Fatigue [Unknown]

NARRATIVE: CASE EVENT DATE: 20230801
